FAERS Safety Report 8750355 (Version 2)
Quarter: 2013Q1

REPORT INFORMATION
  Report Type: Spontaneous
  Country: US (occurrence: None)
  Receive Date: 20120809
  Receipt Date: 20130228
  Transmission Date: 20140127
  Serious: Yes (Hospitalization, Other)
  Sender: FDA-Public Use
  Company Number: TPA2011A04994

PATIENT
  Age: 52 Year
  Sex: Male
  Weight: 95.26 kg

DRUGS (5)
  1. ULORIC [Suspect]
     Indication: GOUT
     Dates: start: 201108
  2. IRON SUPPLEMENT (IRON) [Concomitant]
  3. ATENOLOL (ATENOLOL) [Concomitant]
  4. GEMFIBROZIL [Concomitant]
  5. SUCRALFATE [Concomitant]

REACTIONS (5)
  - Anaemia [None]
  - Oedema peripheral [None]
  - Gout [None]
  - Neuropathy peripheral [None]
  - Ulcer [None]
